FAERS Safety Report 5651930-4 (Version None)
Quarter: 2008Q1

REPORT INFORMATION
  Report Type: 
  Country: None (occurrence: None)
  Receive Date: 20080305
  Receipt Date: 20080222
  Transmission Date: 20080703
  Serious: Yes (Hospitalization, Other)
  Sender: FDA-Public Use
  Company Number: US-PFIZER INC-2008015124

PATIENT
  Sex: Female
  Weight: 75 kg

DRUGS (9)
  1. DILANTIN [Suspect]
     Indication: EPILEPSY
     Dosage: DAILY DOSE:430MG
  2. DILANTIN [Suspect]
     Indication: CONVULSION
  3. TOPAMAX [Concomitant]
  4. LYRICA [Concomitant]
  5. SYNTHROID [Concomitant]
  6. PAXIL [Concomitant]
  7. ASCORBIC ACID [Concomitant]
  8. VITAMIN CAP [Concomitant]
  9. FOLTX [Concomitant]

REACTIONS (5)
  - BRAIN OPERATION [None]
  - CONVULSION [None]
  - GINGIVAL DISORDER [None]
  - NAUSEA [None]
  - TOOTH EROSION [None]
